FAERS Safety Report 12169593 (Version 2)
Quarter: 2016Q2

REPORT INFORMATION
  Report Type: Report from Study
  Country: TW (occurrence: TW)
  Receive Date: 20160310
  Receipt Date: 20160405
  Transmission Date: 20160815
  Serious: Yes (Hospitalization)
  Sender: FDA-Public Use
  Company Number: TW-ABBVIE-16K-153-1575132-00

PATIENT
  Age: 44 Year
  Sex: Male
  Weight: 87.8 kg

DRUGS (5)
  1. HUMIRA [Suspect]
     Active Substance: ADALIMUMAB
     Indication: PSORIATIC ARTHROPATHY
     Route: 058
     Dates: start: 20140530, end: 20160219
  2. NOGOUT [Concomitant]
     Indication: GOUT
     Route: 048
     Dates: start: 20130627
  3. HUMIRA [Suspect]
     Active Substance: ADALIMUMAB
     Route: 058
     Dates: start: 20160318
  4. SALAZINE [Concomitant]
     Active Substance: SULFASALAZINE
     Indication: PSORIATIC ARTHROPATHY
     Route: 048
     Dates: start: 20141211
  5. CYCLOSPORINE. [Concomitant]
     Active Substance: CYCLOSPORINE
     Indication: PSORIATIC ARTHROPATHY
     Route: 048
     Dates: start: 20141211

REACTIONS (12)
  - Blood bilirubin increased [Unknown]
  - Cholecystitis [Recovered/Resolved]
  - Hepatitis A antibody positive [Unknown]
  - Aspartate aminotransferase increased [Unknown]
  - Inguinal hernia [Recovered/Resolved]
  - Platelet count increased [Unknown]
  - Haemoglobin decreased [Unknown]
  - Blood alkaline phosphatase increased [Unknown]
  - Alanine aminotransferase increased [Unknown]
  - Inflammation [Recovered/Resolved]
  - White blood cell count increased [Recovered/Resolved]
  - C-reactive protein increased [Unknown]

NARRATIVE: CASE EVENT DATE: 20160225
